FAERS Safety Report 14525212 (Version 1)
Quarter: 2018Q1

REPORT INFORMATION
  Report Type: Spontaneous
  Country: IT (occurrence: IT)
  Receive Date: 20180213
  Receipt Date: 20180213
  Transmission Date: 20180509
  Serious: Yes (Congenital Anomaly, Other)
  Sender: FDA-Public Use
  Company Number: PHHY2017IT200744

PATIENT
  Age: 66 Year
  Sex: Male
  Weight: 69 kg

DRUGS (6)
  1. OXALIPLATIN. [Suspect]
     Active Substance: OXALIPLATIN
     Indication: COLON CANCER
     Dosage: 1700 MG, CYCLIC
     Route: 065
     Dates: start: 20161122, end: 20170221
  2. CALCIUM FOLINATE [Suspect]
     Active Substance: LEUCOVORIN CALCIUM
     Indication: COLON CANCER
     Dosage: 1700 MG, CYCLIC
     Route: 065
     Dates: start: 20161123, end: 20170221
  3. FLUOROURACIL. [Suspect]
     Active Substance: FLUOROURACIL
     Indication: COLON CANCER
     Dosage: 1700 MG, CYCLIC
     Route: 065
     Dates: start: 20161123, end: 20170221
  4. PANITUMUMABUM [Suspect]
     Active Substance: PANITUMUMAB
     Indication: COLON CANCER METASTATIC
     Dosage: 450 MG, Q2W
     Route: 042
  5. PANITUMUMABUM [Suspect]
     Active Substance: PANITUMUMAB
     Indication: COLON CANCER
     Dosage: 300 MG, Q2W
     Route: 042
  6. FOLFOX [Suspect]
     Active Substance: FLUOROURACIL\LEUCOVORIN CALCIUM\OXALIPLATIN
     Indication: COLON CANCER METASTATIC
     Dosage: 1700 MG, Q2W
     Route: 042

REACTIONS (17)
  - Erythema multiforme [Recovered/Resolved]
  - Rash [Recovered/Resolved]
  - Scab [Recovered/Resolved]
  - Neuralgia [Recovered/Resolved]
  - Supraventricular tachycardia [Recovered/Resolved]
  - Dry skin [Recovered/Resolved]
  - Mucocutaneous rash [Unknown]
  - Skin toxicity [Recovered/Resolved]
  - Erythema [Recovered/Resolved]
  - Pyrexia [Recovered/Resolved]
  - Diarrhoea [Unknown]
  - Dermatitis acneiform [Recovered/Resolved]
  - Xerosis [Recovered/Resolved]
  - Astringent therapy [Recovered/Resolved]
  - Nausea [Recovered/Resolved]
  - Paronychia [Recovered/Resolved]
  - Skin exfoliation [Recovered/Resolved]

NARRATIVE: CASE EVENT DATE: 20170102
